FAERS Safety Report 14940141 (Version 2)
Quarter: 2018Q3

REPORT INFORMATION
  Report Type: Spontaneous
  Country: GB (occurrence: GB)
  Receive Date: 20180525
  Receipt Date: 20180709
  Transmission Date: 20181010
  Serious: Yes (Death, Hospitalization)
  Sender: FDA-Public Use
  Company Number: GB-JNJFOC-20180532821

PATIENT
  Age: 71 Year
  Sex: Female

DRUGS (1)
  1. DARATUMUMAB [Suspect]
     Active Substance: DARATUMUMAB
     Indication: PLASMA CELL MYELOMA
     Route: 042
     Dates: start: 20180301

REACTIONS (6)
  - Sepsis [Unknown]
  - Metastatic neoplasm [Fatal]
  - Peripheral ischaemia [Unknown]
  - Pericardial effusion [Unknown]
  - Disseminated intravascular coagulation [Unknown]
  - Skin lesion [Unknown]

NARRATIVE: CASE EVENT DATE: 2018
